FAERS Safety Report 6045017-9 (Version None)
Quarter: 2009Q1

REPORT INFORMATION
  Report Type: 
  Country: None (occurrence: None)
  Receive Date: 20090121
  Receipt Date: 20090115
  Transmission Date: 20090719
  Serious: Yes (Death)
  Sender: FDA-Public Use
  Company Number: US-BRISTOL-MYERS SQUIBB COMPANY-14472948

PATIENT
  Age: 56 Year
  Sex: Female

DRUGS (9)
  1. TRAZODONE HCL [Suspect]
     Route: 048
  2. OXYCODONE HCL [Suspect]
     Route: 048
  3. ACETAMINOPHEN [Suspect]
     Route: 048
  4. FENTANYL CITRATE [Suspect]
     Route: 048
  5. ACETAMINOPHEN AND HYDROCODONE BITARTRATE [Suspect]
     Route: 048
  6. CARISOPRODOL [Suspect]
     Route: 048
  7. DIPHENHYDRAMINE HCL [Suspect]
     Route: 048
  8. BUPROPION HCL [Suspect]
     Route: 048
  9. CITALOPRAM HYDROBROMIDE [Suspect]
     Route: 048

REACTIONS (1)
  - DRUG TOXICITY [None]
